FAERS Safety Report 8553948-0 (Version None)
Quarter: 2012Q3

REPORT INFORMATION
  Report Type: 
  Country: None (occurrence: None)
  Receive Date: 20120731
  Receipt Date: 20120719
  Transmission Date: 20120928
  Serious: Yes (Hospitalization, Other)
  Sender: FDA-Public Use
  Company Number: US-009507513-1203USA00794

PATIENT

DRUGS (9)
  1. FOSAMAX [Suspect]
     Indication: OSTEOPOROSIS
     Dosage: 70 MG, QW
     Route: 048
     Dates: start: 20011101, end: 20060309
  2. VITAMIN D (UNSPECIFIED) [Concomitant]
     Indication: OSTEOPOROSIS
  3. THERAPY UNSPECIFIED [Concomitant]
     Indication: BLOOD CHOLESTEROL INCREASED
     Dates: start: 20030101
  4. CALCIUM (UNSPECIFIED) [Concomitant]
     Indication: OSTEOPOROSIS
  5. BONIVA [Suspect]
     Indication: OSTEOPENIA
  6. PRILOSEC [Concomitant]
     Indication: GASTROOESOPHAGEAL REFLUX DISEASE
     Route: 048
     Dates: start: 19970101, end: 20030101
  7. FOSAMAX [Suspect]
     Indication: OSTEOPENIA
  8. BONIVA [Suspect]
     Indication: OSTEOPOROSIS
     Dosage: UNK, QM
     Route: 048
     Dates: start: 20060309, end: 20100301
  9. ONE-A-DAY ESSENTIAL VITAMINS [Concomitant]

REACTIONS (50)
  - NON-HODGKIN'S LYMPHOMA [None]
  - CHOLELITHIASIS [None]
  - BIOPSY KIDNEY [None]
  - HERPES SIMPLEX [None]
  - HEADACHE [None]
  - HYPERSENSITIVITY [None]
  - VAGINITIS BACTERIAL [None]
  - PAROTITIS [None]
  - APHTHOUS STOMATITIS [None]
  - DEVICE BREAKAGE [None]
  - PLANTAR FASCIITIS [None]
  - SCIATICA [None]
  - C-REACTIVE PROTEIN INCREASED [None]
  - RADIATION OESOPHAGITIS [None]
  - TENDONITIS [None]
  - FOREIGN BODY [None]
  - BRONCHITIS [None]
  - URINARY TRACT INFECTION [None]
  - FEMUR FRACTURE [None]
  - TOOTH DISORDER [None]
  - PALPITATIONS [None]
  - VITAMIN D DEFICIENCY [None]
  - CERVICOBRACHIAL SYNDROME [None]
  - RASH [None]
  - NAUSEA [None]
  - FRACTURE NONUNION [None]
  - MALIGNANT MELANOMA [None]
  - INSOMNIA [None]
  - BURSITIS [None]
  - MEMORY IMPAIRMENT [None]
  - ACUTE SINUSITIS [None]
  - VOMITING [None]
  - MIGRAINE [None]
  - OSTEOARTHRITIS [None]
  - DEPRESSION [None]
  - BLOOD COUNT ABNORMAL [None]
  - HOT FLUSH [None]
  - FOOT FRACTURE [None]
  - TENDON DISORDER [None]
  - CERUMEN IMPACTION [None]
  - ARTHROPOD BITE [None]
  - OTITIS MEDIA ACUTE [None]
  - BACK PAIN [None]
  - DIARRHOEA [None]
  - LYMPHOMA [None]
  - PAIN [None]
  - BODY FAT DISORDER [None]
  - WEIGHT INCREASED [None]
  - STOMATITIS [None]
  - CHEST PAIN [None]
